FAERS Safety Report 9002634 (Version 2)
Quarter: 2013Q3

REPORT INFORMATION
  Report Type: Spontaneous
  Country: JP (occurrence: None)
  Receive Date: 20121226
  Receipt Date: 20130705
  Transmission Date: 20140515
  Serious: Yes (Other)
  Sender: FDA-Public Use
  Company Number: 2008JP003688

PATIENT
  Age: 37 Year
  Sex: Female
  Weight: 56 kg

DRUGS (19)
  1. PROGRAF (TACROLIMUS) CAPSULE [Suspect]
     Indication: LUPUS NEPHRITIS
     Route: 048
     Dates: start: 20071024
  2. CELECOX [Suspect]
     Indication: ARTHRALGIA
     Route: 048
     Dates: start: 20070919
  3. PREDNISOLONE (PREDNISOLONE) [Suspect]
     Indication: LUPUS NEPHRITIS
     Route: 048
     Dates: end: 20071002
  4. MUCOSTA (REBAMIPIDE) [Concomitant]
  5. MAGMITT (MAGNESIUM OXIDE) [Concomitant]
  6. LAXOBERON (SODIUM PICOSULFATE) [Concomitant]
  7. LASIX (FUROSEMIDE) [Concomitant]
  8. CRESTOR (ROSUVASTATIN CALCIUM) [Concomitant]
  9. LENDORMIN (BROTIZOLAM) [Concomitant]
  10. ALLELOCK (OLOPATADINE HYDROCHLORIDE) [Concomitant]
  11. ZADITEN (KETOTIFEN FUARATE) [Concomitant]
  12. FOSAMAC (ALENDRONATE SODIUM) [Concomitant]
  13. GLAKAY (MENATETRENONE) [Concomitant]
  14. INTEBAN (INDOMETACIN) [Concomitant]
  15. BENZALIN /00036201/ (NITRAZEPAM) [Concomitant]
  16. LUVOX (FLUVOXAMINE MALEATE) [Concomitant]
  17. ALLEGRA [Concomitant]
  18. UROCALUN /06065701/ (QUERCUS SALICINA) [Concomitant]
  19. CERCINE (DIAZEPAM) [Concomitant]

REACTIONS (6)
  - Calculus ureteric [None]
  - Nephrolithiasis [None]
  - Insomnia [None]
  - Erythema [None]
  - Abdominal pain upper [None]
  - Depression [None]
